FAERS Safety Report 16803598 (Version 1)
Quarter: 2019Q3

REPORT INFORMATION
  Report Type: Spontaneous
  Country: IT (occurrence: IT)
  Receive Date: 20190913
  Receipt Date: 20190913
  Transmission Date: 20191005
  Serious: Yes (Other)
  Sender: FDA-Public Use
  Company Number: IT-TEVA-2019-IT-1106022

PATIENT
  Age: 68 Year
  Sex: Female
  Weight: 75 kg

DRUGS (3)
  1. DOCETAXEL ACCORD [Suspect]
     Active Substance: DOCETAXEL
     Indication: BREAST NEOPLASM
     Dosage: 89.7 MG
     Route: 042
     Dates: start: 20190312, end: 20190710
  2. CARBOPLATINO TEVA [Suspect]
     Active Substance: CARBOPLATIN
     Indication: BREAST NEOPLASM
     Dosage: 404 MG
     Route: 042
     Dates: start: 20190312, end: 20190710
  3. ONTRUZANT [Concomitant]
     Active Substance: TRASTUZUMAB-DTTB
     Indication: BREAST NEOPLASM
     Dosage: 295.5 MG
     Route: 042
     Dates: start: 20190312, end: 20190710

REACTIONS (1)
  - Febrile neutropenia [Recovered/Resolved]

NARRATIVE: CASE EVENT DATE: 20190620
